FAERS Safety Report 5684449-5 (Version None)
Quarter: 2008Q1

REPORT INFORMATION
  Report Type: 
  Country: None (occurrence: None)
  Receive Date: 20080328
  Receipt Date: 20080324
  Transmission Date: 20080703
  Serious: Yes (Other)
  Sender: FDA-Public Use
  Company Number: US-MERCK-0803USA02955

PATIENT

DRUGS (1)
  1. FOSAMAX [Suspect]
     Route: 065

REACTIONS (1)
  - HIP FRACTURE [None]
